FAERS Safety Report 24214086 (Version 1)
Quarter: 2024Q3

REPORT INFORMATION
  Report Type: Report from Study
  Country: US (occurrence: None)
  Receive Date: 20240815
  Receipt Date: 20240815
  Transmission Date: 20241016
  Serious: Yes (Hospitalization, Other)
  Sender: ASTRAZENECA
  Company Number: 2023A143293

PATIENT
  Sex: Female

DRUGS (1)
  1. SYMBICORT [Suspect]
     Active Substance: BUDESONIDE\FORMOTEROL FUMARATE DIHYDRATE
     Dosage: UNKNOWN UNKNOWN
     Route: 055

REACTIONS (6)
  - Transient ischaemic attack [Unknown]
  - Trismus [Unknown]
  - Pulmonary thrombosis [Unknown]
  - Motor dysfunction [Unknown]
  - Ligament sprain [Unknown]
  - Product dose omission issue [Unknown]
